FAERS Safety Report 18383679 (Version 2)
Quarter: 2020Q4

REPORT INFORMATION
  Report Type: Spontaneous
  Country: US (occurrence: US)
  Receive Date: 20201014
  Receipt Date: 20201015
  Transmission Date: 20210114
  Serious: Yes (Other)
  Sender: FDA-Public Use
  Company Number: US-PFIZER INC-2020396297

PATIENT
  Age: 58 Year
  Sex: Female
  Weight: 79.38 kg

DRUGS (1)
  1. CHANTIX [Suspect]
     Active Substance: VARENICLINE TARTRATE
     Indication: EX-TOBACCO USER
     Dosage: 1 MG, 2X/DAY (1 MG TWICE A DAY, IN THE MORNING AND AT NIGHT/SHE WAS TAKING 1MG IN THE MORNING AND 1
     Dates: start: 2020

REACTIONS (5)
  - Chronic obstructive pulmonary disease [Unknown]
  - Dyspnoea [Unknown]
  - Bronchitis [Unknown]
  - Pneumonia [Unknown]
  - Brain hypoxia [Unknown]

NARRATIVE: CASE EVENT DATE: 2020
